FAERS Safety Report 18364048 (Version 1)
Quarter: 2020Q4

REPORT INFORMATION
  Report Type: Spontaneous
  Country: US (occurrence: US)
  Receive Date: 20201009
  Receipt Date: 20201009
  Transmission Date: 20210114
  Serious: No
  Sender: FDA-Public Use
  Company Number: US-SA-2020SA273501

PATIENT

DRUGS (3)
  1. NA [Concomitant]
     Active Substance: SODIUM
     Dosage: UNK
  2. ALLEGRA D-12 HOUR [Suspect]
     Active Substance: FEXOFENADINE HYDROCHLORIDE\PSEUDOEPHEDRINE HYDROCHLORIDE
     Indication: EYE PRURITUS
     Dosage: 180 MG, QD
     Route: 065
  3. ALLEGRA D-12 HOUR [Suspect]
     Active Substance: FEXOFENADINE HYDROCHLORIDE\PSEUDOEPHEDRINE HYDROCHLORIDE
     Indication: NASAL CONGESTION

REACTIONS (2)
  - Drug ineffective [Unknown]
  - Product residue present [Unknown]
